FAERS Safety Report 5005002-2 (Version None)
Quarter: 2006Q1

REPORT INFORMATION
  Report Type: 
  Country: None (occurrence: None)
  Receive Date: 20060327
  Receipt Date: 20051202
  Transmission Date: 20060701
  Serious: Yes (Other)
  Sender: FDA-Public Use
  Company Number: PHEH2005US13140

PATIENT
  Sex: Female

DRUGS (3)
  1. MYCOPHENOLIC ACID [Suspect]
     Indication: RENAL TRANSPLANT
     Dosage: 360 MG, BID, ORAL
     Route: 048
  2. STEROIDS (NO INGREDIENTS/SUBSTANCES) [Concomitant]
  3. PROGRAF [Concomitant]

REACTIONS (2)
  - ENZYME ABNORMALITY [None]
  - PANCREATITIS [None]
